FAERS Safety Report 9887024 (Version 1)
Quarter: 2014Q1

REPORT INFORMATION
  Report Type: Spontaneous
  Country: US (occurrence: US)
  Receive Date: 20140211
  Receipt Date: 20140211
  Transmission Date: 20141002
  Serious: No
  Sender: FDA-Public Use
  Company Number: US-BIOGENIDEC-2014BI011179

PATIENT
  Age: 31 Year
  Sex: Male

DRUGS (2)
  1. TYSABRI [Suspect]
     Indication: MULTIPLE SCLEROSIS
     Route: 042
  2. TYSABRI [Suspect]
     Indication: MULTIPLE SCLEROSIS
     Route: 042
     Dates: start: 20110321, end: 20131017

REACTIONS (13)
  - Abdominal pain [Unknown]
  - Gait disturbance [Unknown]
  - Balance disorder [Unknown]
  - Visual impairment [Unknown]
  - Central nervous system lesion [Not Recovered/Not Resolved]
  - Nausea [Unknown]
  - Vomiting [Unknown]
  - Chills [Unknown]
  - Asthenia [Unknown]
  - Drug ineffective [Unknown]
  - Drug specific antibody present [Unknown]
  - Multiple sclerosis relapse [Unknown]
  - Malaise [Unknown]
